FAERS Safety Report 9663647 (Version 1)
Quarter: 2013Q4

REPORT INFORMATION
  Report Type: Spontaneous
  Country: US (occurrence: None)
  Receive Date: 20131030
  Receipt Date: 20131030
  Transmission Date: 20140711
  Serious: Yes (Disabling, Other)
  Sender: FDA-Public Use
  Company Number: None

PATIENT
  Age: 28 Year
  Sex: Female
  Weight: 68.04 kg

DRUGS (1)
  1. MIRENA [Suspect]

REACTIONS (10)
  - Medical device pain [None]
  - Medical device discomfort [None]
  - Hormone level abnormal [None]
  - Emotional disorder [None]
  - Stress [None]
  - Activities of daily living impaired [None]
  - Ovarian cyst [None]
  - Uterine perforation [None]
  - Alopecia [None]
  - Acne [None]
